FAERS Safety Report 9812487 (Version 1)
Quarter: 2014Q1

REPORT INFORMATION
  Report Type: Spontaneous
  Country: US (occurrence: US)
  Receive Date: 20140113
  Receipt Date: 20140113
  Transmission Date: 20141002
  Serious: No
  Sender: FDA-Public Use
  Company Number: US-BIOGENIDEC-2014BI002481

PATIENT
  Sex: Female

DRUGS (7)
  1. AVONEX [Suspect]
     Indication: MULTIPLE SCLEROSIS
     Route: 030
     Dates: start: 20060405
  2. AVONEX [Suspect]
     Indication: MULTIPLE SCLEROSIS
     Route: 030
  3. BACLOFEN [Concomitant]
  4. PREMPRO [Concomitant]
  5. PAROXETINE [Concomitant]
  6. GABAPENTIN [Concomitant]
  7. AMPYRA [Concomitant]

REACTIONS (2)
  - Constipation [Not Recovered/Not Resolved]
  - Insomnia [Unknown]
